FAERS Safety Report 4762018-9 (Version None)
Quarter: 2005Q3

REPORT INFORMATION
  Report Type: 
  Country: None (occurrence: None)
  Receive Date: 20050831
  Receipt Date: 20050512
  Transmission Date: 20060218
  Serious: No
  Sender: FDA-Public Use
  Company Number: PHEH2005US05460

PATIENT
  Sex: Female

DRUGS (1)
  1. ENABLEX [Suspect]
     Indication: HYPERTONIC BLADDER
     Dosage: 7.5 MG QD ORAL
     Route: 048
     Dates: start: 20050511

REACTIONS (3)
  - BALANCE DISORDER [None]
  - HEAD DISCOMFORT [None]
  - INSOMNIA [None]
